FAERS Safety Report 7210898-X (Version None)
Quarter: 2011Q1

REPORT INFORMATION
  Report Type: 
  Country: None (occurrence: None)
  Receive Date: 20110105
  Receipt Date: 20101231
  Transmission Date: 20110831
  Serious: Yes (Death)
  Sender: FDA-Public Use
  Company Number: US-ASTRAZENECA-2011SE00221

PATIENT
  Age: 56 Year
  Sex: Male

DRUGS (3)
  1. MIRTAZAPINE [Suspect]
     Route: 048
  2. ETHANOL [Suspect]
     Route: 048
  3. LISINOPRIL [Suspect]
     Route: 048

REACTIONS (2)
  - COMPLETED SUICIDE [None]
  - TOXICITY TO VARIOUS AGENTS [None]
